FAERS Safety Report 7535465-X (Version None)
Quarter: 2011Q2

REPORT INFORMATION
  Report Type: 
  Country: None (occurrence: None)
  Receive Date: 20110609
  Receipt Date: 20080624
  Transmission Date: 20111010
  Serious: Yes (Other)
  Sender: FDA-Public Use
  Company Number: PHMT2007CA00947

PATIENT
  Sex: Male

DRUGS (11)
  1. ATROPINE [Concomitant]
     Dosage: 2 DROPS SL AT BEDTIME
  2. DOCUSATE SODIUM [Concomitant]
     Dosage: 100MG Q AM
     Route: 048
  3. MULTI-VITAMINS [Concomitant]
     Dosage: 1ML Q AM
     Route: 048
  4. LORAZEPAM [Concomitant]
     Indication: SEDATION
     Dosage: 3 MG, UNK
  5. PREVACID [Concomitant]
     Dosage: 30 MG, UNK
     Route: 048
  6. CHLORPROMAZINE [Concomitant]
     Indication: HICCUPS
     Dosage: 12.5 MG, UNK
  7. CLOZAPINE [Concomitant]
     Dosage: 200 MG, AT BED TIME
     Route: 048
  8. STELAZINE [Concomitant]
     Indication: VOMITING
     Dosage: 10 MG, Q6H
  9. CLOZAPINE [Suspect]
     Indication: SCHIZOPHRENIA
     Dosage: UNKNOWN
     Route: 048
     Dates: start: 20001019
  10. SENNOSIDE [Concomitant]
     Dosage: 17 MG, AT BED TIME
  11. CLOZAPINE [Concomitant]
     Dosage: 50MG Q AM

REACTIONS (3)
  - THROAT CANCER [None]
  - WHITE BLOOD CELL COUNT DECREASED [None]
  - NEUTROPHIL COUNT DECREASED [None]
